FAERS Safety Report 23779121 (Version 2)
Quarter: 2024Q2

REPORT INFORMATION
  Report Type: Report from Study
  Country: CA (occurrence: CA)
  Receive Date: 20240424
  Receipt Date: 20240430
  Transmission Date: 20240716
  Serious: Yes (Other)
  Sender: FDA-Public Use
  Company Number: CA-ELI_LILLY_AND_COMPANY-CA202402002119

PATIENT
  Age: 51 Year
  Sex: Male

DRUGS (1)
  1. OMVOH [Suspect]
     Active Substance: MIRIKIZUMAB-MRKZ
     Indication: Colitis ulcerative
     Dosage: 300 MG, UNKNOWN
     Route: 042
     Dates: start: 20231229

REACTIONS (8)
  - Infusion site extravasation [Unknown]
  - Colitis ulcerative [Not Recovered/Not Resolved]
  - Infusion site swelling [Recovered/Resolved]
  - Incorrect route of product administration [Unknown]
  - Incorrect dose administered [Unknown]
  - Infusion site pain [Not Recovered/Not Resolved]
  - Infusion site bruising [Recovered/Resolved]
  - Headache [Recovered/Resolved]

NARRATIVE: CASE EVENT DATE: 20231229
